FAERS Safety Report 17195700 (Version 2)
Quarter: 2020Q1

REPORT INFORMATION
  Report Type: Other
  Country: DE (occurrence: DE)
  Receive Date: 20191224
  Receipt Date: 20200227
  Transmission Date: 20200409
  Serious: Yes (Hospitalization, Other)
  Sender: FDA-Public Use
  Company Number: DE-LUPIN PHARMACEUTICALS INC.-2019-08565

PATIENT
  Age: 38 Year
  Sex: Male
  Weight: 100 kg

DRUGS (14)
  1. LAMOTRIGINE. [Concomitant]
     Active Substance: LAMOTRIGINE
     Dosage: UNK (100 MG 3 AND HALF TABLETS IN MORNING AND 3 AND HALF TABLETS IN EVENING, 2X/DAY (BID)
     Route: 065
     Dates: start: 20190915
  2. LAMOTRIGINE. [Concomitant]
     Active Substance: LAMOTRIGINE
     Dosage: UNK, BID (100 MG 2 AND HALF TABLETS IN MORNING AND 2 AND HALF TABLETS IN EVENING, 2X/DAY (BID)
     Route: 065
     Dates: start: 20190903, end: 201909
  3. LEVETIRACETAM. [Suspect]
     Active Substance: LEVETIRACETAM
     Dosage: UNK UNK, BID (500 MG HALF TABLET TWICE DAILY, 2X/DAY (BID)
     Route: 048
     Dates: start: 20190915, end: 20190929
  4. NEBIVOLOL. [Concomitant]
     Active Substance: NEBIVOLOL
     Indication: HYPERTENSION
     Dosage: 5 MILLIGRAM, QD
     Route: 048
  5. LAMOTRIGINE. [Concomitant]
     Active Substance: LAMOTRIGINE
     Dosage: 3 DOSAGE FORM, BID (100 MG 3 TABLETS IN MORNING AND 3 TABLETS IN EVENING)
     Route: 065
     Dates: start: 20190909, end: 201909
  6. LAMOTRIGINE. [Concomitant]
     Active Substance: LAMOTRIGINE
     Dosage: UNK (100 MG 2 AND HALF TABLETS IN MORNING AND 2 TABLETS IN EVENING, 2X/DAY (BID)
     Route: 065
     Dates: start: 20190831, end: 201909
  7. LAMOTRIGINE. [Concomitant]
     Active Substance: LAMOTRIGINE
     Dosage: UNK (100 MG 3 AND HALF TABLETS IN MORNING AND 3 TABLETS IN EVENING, 2X/DAY (BID)
     Route: 065
     Dates: start: 20190912, end: 201909
  8. LEVETIRACETAM. [Suspect]
     Active Substance: LEVETIRACETAM
     Indication: EPILEPSY
     Dosage: 500 MILLIGRAM, BID, (500 MILLIGRAM, 2X/DAY (BID))
     Route: 048
  9. LAMOTRIGINE. [Concomitant]
     Active Substance: LAMOTRIGINE
     Indication: EPILEPSY
     Dosage: 600 MILLIGRAM, UNK
     Route: 065
  10. LAMOTRIGINE. [Concomitant]
     Active Substance: LAMOTRIGINE
     Dosage: UNK UNK, BID (100 MG 2 TABLETS IN MORNING AND 1 AND HALF TABLET IN EVENING)
     Route: 065
     Dates: start: 20190824, end: 201908
  11. LAMOTRIGINE. [Concomitant]
     Active Substance: LAMOTRIGINE
     Dosage: 2 DOSAGE FORM, BID (100 MG 2 TABLETS IN MORNING AND 2 TABLETS IN EVENING, 2X/DAY (BID)
     Route: 065
     Dates: start: 20190827, end: 201908
  12. ZOPICLONE [Concomitant]
     Active Substance: ZOPICLONE
     Indication: PRODUCT USED FOR UNKNOWN INDICATION
     Dosage: 7.5 MILLIGRAM, QD
     Route: 048
  13. LAMOTRIGINE. [Concomitant]
     Active Substance: LAMOTRIGINE
     Dosage: UNK (100 MG 3 TABLETS IN MORNING AND 2 AND HALF TABLETS IN EVENING, 2X/DAY (BID)
     Route: 065
     Dates: start: 20190906, end: 201909
  14. LAMOTRIGINE. [Concomitant]
     Active Substance: LAMOTRIGINE
     Dosage: UNK, BID (UNK, QD (100 MG 1 AND HALF TABLET TWICE DAILY, 2X/DAY (BID)
     Route: 065

REACTIONS (5)
  - Burnout syndrome [Unknown]
  - Dysphoria [Recovered/Resolved]
  - Cardiac disorder [Recovered/Resolved]
  - Seizure [Unknown]
  - Epilepsy [Unknown]
